FAERS Safety Report 26182940 (Version 1)
Quarter: 2025Q4

REPORT INFORMATION
  Report Type: Report from Study
  Country: EU (occurrence: EU)
  Receive Date: 20251221
  Receipt Date: 20251221
  Transmission Date: 20260117
  Serious: Yes (Death)
  Sender: SERVIER
  Company Number: EU-SERVIER-S25018073

PATIENT

DRUGS (8)
  1. PEGASPARGASE [Suspect]
     Active Substance: PEGASPARGASE
     Indication: Acute lymphocytic leukaemia
     Dosage: 2775 MG, QD
     Route: 042
     Dates: start: 20251108, end: 20251108
  2. DARATUMUMAB [Suspect]
     Active Substance: DARATUMUMAB
     Indication: Acute lymphocytic leukaemia
     Dosage: 1800 MG, QD
     Route: 058
     Dates: start: 20251031, end: 20251106
  3. IDARUBICIN [Interacting]
     Active Substance: IDARUBICIN
     Indication: Acute lymphocytic leukaemia
     Dosage: 22.2 MG, QD
     Route: 042
     Dates: start: 20251030, end: 20251031
  4. VINCRISTINE [Interacting]
     Active Substance: VINCRISTINE
     Indication: Acute lymphocytic leukaemia
     Dosage: 2 MILLIGRAM
     Route: 042
     Dates: start: 20251030, end: 20251106
  5. DEXAMETHASONE [Interacting]
     Active Substance: DEXAMETHASONE
     Indication: Prophylaxis
     Dosage: 18.5 MG, QOD
     Route: 042
     Dates: start: 20251030, end: 20251106
  6. DEXAMETHASONE [Interacting]
     Active Substance: DEXAMETHASONE
     Dosage: 4 MG, QD
     Route: 037
     Dates: start: 20251103, end: 20251107
  7. METHOTREXATE [Interacting]
     Active Substance: METHOTREXATE
     Indication: Prophylaxis
     Dosage: 12.5 MG, QD
     Route: 037
     Dates: start: 20251103, end: 20251107
  8. CYTARABINE [Interacting]
     Active Substance: CYTARABINE
     Indication: Prophylaxis
     Dosage: 50 MG, QD
     Route: 037
     Dates: start: 20251103, end: 20251107

REACTIONS (1)
  - Acute respiratory failure [Fatal]

NARRATIVE: CASE EVENT DATE: 20251119
